FAERS Safety Report 9241085 (Version 1)
Quarter: 2013Q2

REPORT INFORMATION
  Report Type: Spontaneous
  Country: DE (occurrence: DE)
  Receive Date: 20130419
  Receipt Date: 20130419
  Transmission Date: 20140414
  Serious: Yes (Other)
  Sender: FDA-Public Use
  Company Number: DE-PFIZER INC-2013120405

PATIENT
  Age: 24 Year
  Sex: Female

DRUGS (16)
  1. IBUPROFEN [Suspect]
     Indication: PYREXIA
     Dosage: UNK
     Route: 065
  2. IBUPROFEN [Suspect]
     Indication: APATHY
     Dosage: UNK
     Route: 065
  3. IBUPROFEN [Suspect]
     Indication: RHINITIS
     Dosage: UNK
     Route: 065
  4. IBUPROFEN [Suspect]
     Indication: ODYNOPHAGIA
     Dosage: UNK
     Route: 065
  5. PARACETAMOL [Suspect]
     Indication: PYREXIA
     Dosage: UNK
     Route: 065
  6. PARACETAMOL [Suspect]
     Indication: APATHY
     Dosage: UNK
     Route: 065
  7. PARACETAMOL [Suspect]
     Indication: RHINITIS
     Dosage: UNK
     Route: 065
  8. PARACETAMOL [Suspect]
     Indication: ODYNOPHAGIA
     Dosage: UNK
     Route: 065
  9. ACETYLSALICYLIC ACID [Suspect]
     Indication: PYREXIA
     Dosage: UNK
     Route: 065
  10. ACETYLSALICYLIC ACID [Suspect]
     Indication: APATHY
     Dosage: UNK
     Route: 065
  11. ACETYLSALICYLIC ACID [Suspect]
     Indication: RHINITIS
     Dosage: UNK
     Route: 065
  12. ACETYLSALICYLIC ACID [Suspect]
     Indication: ODYNOPHAGIA
     Dosage: UNK
     Route: 065
  13. AMOXICILLIN [Suspect]
     Indication: PYREXIA
     Dosage: UNK
     Route: 065
  14. AMOXICILLIN [Suspect]
     Indication: APATHY
     Dosage: UNK
     Route: 065
  15. AMOXICILLIN [Suspect]
     Indication: RHINITIS
     Dosage: UNK
     Route: 065
  16. AMOXICILLIN [Suspect]
     Indication: ODYNOPHAGIA
     Dosage: UNK
     Route: 065

REACTIONS (1)
  - Fuchs^ syndrome [Unknown]
